FAERS Safety Report 22218126 (Version 1)
Quarter: 2023Q2

REPORT INFORMATION
  Report Type: Spontaneous
  Country: US (occurrence: US)
  Receive Date: 20230417
  Receipt Date: 20230417
  Transmission Date: 20230722
  Serious: Yes (Death)
  Sender: FDA-Public Use
  Company Number: US-PTC THERAPEUTICS INC.-US-2023PTC000514

PATIENT
  Age: 22 Year
  Sex: Male
  Weight: 57.596 kg

DRUGS (1)
  1. EMFLAZA [Suspect]
     Active Substance: DEFLAZACORT
     Indication: Duchenne muscular dystrophy
     Dosage: 36 MG, QD
     Route: 048
     Dates: start: 20230216

REACTIONS (1)
  - Death [Fatal]

NARRATIVE: CASE EVENT DATE: 20230412
